FAERS Safety Report 9604777 (Version 1)
Quarter: 2013Q4

REPORT INFORMATION
  Report Type: Spontaneous
  Country: US (occurrence: US)
  Receive Date: 20131008
  Receipt Date: 20131008
  Transmission Date: 20140711
  Serious: Yes (Hospitalization)
  Sender: FDA-Public Use
  Company Number: US-PFIZER INC-2013285117

PATIENT
  Age: 58 Year
  Sex: Male
  Weight: 66.21 kg

DRUGS (1)
  1. VFEND [Suspect]
     Indication: PROPHYLAXIS
     Dosage: 200 MG, 2X/DAY
     Dates: start: 201212

REACTIONS (2)
  - Pyrexia [Unknown]
  - Local swelling [Unknown]
